FAERS Safety Report 11993193 (Version 1)
Quarter: 2016Q1

REPORT INFORMATION
  Report Type: Other
  Country: SE (occurrence: SE)
  Receive Date: 20160203
  Receipt Date: 20160203
  Transmission Date: 20160526
  Serious: No
  Sender: FDA-Public Use
  Company Number: SE-LUPIN PHARMACEUTICALS INC.-2016-00188

PATIENT
  Age: 38 Year
  Sex: Male

DRUGS (2)
  1. DESLORATADINE. [Suspect]
     Active Substance: DESLORATADINE
     Indication: PRODUCT USED FOR UNKNOWN INDICATION
     Route: 065
  2. RISPERIDONE. [Interacting]
     Active Substance: RISPERIDONE
     Indication: AUTISM
     Route: 065

REACTIONS (7)
  - Violence-related symptom [Recovered/Resolved]
  - Trismus [Recovered/Resolved]
  - Salivary hypersecretion [Recovered/Resolved]
  - Drug interaction [Unknown]
  - Dysstasia [Recovered/Resolved]
  - Sedation [Recovered/Resolved]
  - Dystonia [Recovered/Resolved]
